FAERS Safety Report 5830289-3 (Version None)
Quarter: 2008Q3

REPORT INFORMATION
  Report Type: 
  Country: None (occurrence: None)
  Receive Date: 20080801
  Receipt Date: 20080721
  Transmission Date: 20090109
  Serious: Yes (Hospitalization, Other)
  Sender: FDA-Public Use
  Company Number: US-ELI_LILLY_AND_COMPANY-US200807004331

PATIENT
  Sex: Male

DRUGS (3)
  1. FORTEO [Suspect]
     Indication: OSTEOPOROSIS
  2. THYROID THERAPY [Concomitant]
     Dosage: 25 UG, UNK
  3. THYROID THERAPY [Concomitant]
     Dosage: 37 UG, UNK

REACTIONS (3)
  - ANOREXIA [None]
  - ANXIETY [None]
  - DEPRESSION [None]
